FAERS Safety Report 19418022 (Version 1)
Quarter: 2021Q2

REPORT INFORMATION
  Report Type: Spontaneous
  Country: CH (occurrence: CH)
  Receive Date: 20210615
  Receipt Date: 20210615
  Transmission Date: 20210717
  Serious: Yes (Hospitalization)
  Sender: FDA-Public Use
  Company Number: CH-MACLEODS PHARMACEUTICALS US LTD-MAC2021031499

PATIENT

DRUGS (3)
  1. ACYCLOVIR. [Suspect]
     Active Substance: ACYCLOVIR
     Indication: OPHTHALMIC HERPES ZOSTER
     Dosage: 1 GRAM, TID, IN NORMAL SALINE OVER 2 HOURS
     Route: 042
  2. OMEPRAZOLE. [Concomitant]
     Active Substance: OMEPRAZOLE
     Indication: OESOPHAGITIS
  3. OMEPRAZOLE. [Concomitant]
     Active Substance: OMEPRAZOLE
     Indication: HIATUS HERNIA
     Dosage: 20 MILLIGRAM, QD, DAY 1?4
     Route: 065

REACTIONS (12)
  - Acute kidney injury [Unknown]
  - Extensor plantar response [Recovered/Resolved]
  - Altered state of consciousness [Recovered/Resolved]
  - Myoclonus [Recovered/Resolved]
  - Hyperreflexia [Recovered/Resolved]
  - Nephropathy toxic [Unknown]
  - Neurotoxicity [Recovered/Resolved]
  - Coma [Recovered/Resolved]
  - Eye infection bacterial [Unknown]
  - Dysarthria [Recovered/Resolved]
  - Blood creatinine increased [Unknown]
  - Blood urea increased [Unknown]
